FAERS Safety Report 16100795 (Version 13)
Quarter: 2019Q2

REPORT INFORMATION
  Report Type: Report from Study
  Country: FR (occurrence: FR)
  Receive Date: 20190321
  Receipt Date: 20190502
  Transmission Date: 20190711
  Serious: Yes (Hospitalization, Other)
  Sender: FDA-Public Use
  Company Number: FR-EISAI MEDICAL RESEARCH-EC-2019-053675

PATIENT
  Age: 53 Year
  Sex: Female
  Weight: 66 kg

DRUGS (8)
  1. PEMBROLIZUMAB. [Suspect]
     Active Substance: PEMBROLIZUMAB
     Indication: HEPATOCELLULAR CARCINOMA
     Route: 041
     Dates: start: 20190305, end: 20190305
  2. ACUPAN [Concomitant]
     Active Substance: NEFOPAM HYDROCHLORIDE
     Dates: start: 201801, end: 20190409
  3. LENVATINIB [Suspect]
     Active Substance: LENVATINIB
     Indication: HEPATOCELLULAR CARCINOMA
     Route: 048
     Dates: start: 20190305
  4. PEMBROLIZUMAB. [Suspect]
     Active Substance: PEMBROLIZUMAB
     Route: 041
     Dates: start: 20190327
  5. ULCAR [Concomitant]
     Active Substance: SUCRALFATE
     Dates: start: 201801
  6. PANTOPRAZOLE [Concomitant]
     Active Substance: PANTOPRAZOLE
     Dates: start: 20190219
  7. LASILIX [Concomitant]
     Active Substance: FUROSEMIDE
     Dates: start: 20190219, end: 20190309
  8. ALDACTONE [Concomitant]
     Active Substance: SPIRONOLACTONE
     Dates: start: 20190219, end: 20190309

REACTIONS (2)
  - Peritonitis [Recovered/Resolved]
  - Ascites [Recovered/Resolved]

NARRATIVE: CASE EVENT DATE: 20190309
